FAERS Safety Report 8577320-2 (Version None)
Quarter: 2012Q3

REPORT INFORMATION
  Report Type: 
  Country: None (occurrence: None)
  Receive Date: 20120807
  Receipt Date: 20120727
  Transmission Date: 20120928
  Serious: Yes (Hospitalization)
  Sender: FDA-Public Use
  Company Number: IT-ELI_LILLY_AND_COMPANY-IT201001005711

PATIENT
  Sex: Male

DRUGS (8)
  1. PREDNISONE TAB [Concomitant]
     Dosage: UNK, UNKNOWN
     Route: 065
  2. MONOCINQUE [Concomitant]
     Dosage: UNK, UNKNOWN
     Route: 065
  3. LANSOPRAZOLE [Concomitant]
     Indication: GASTRIC ULCER
     Dosage: 30 MG, QD
     Dates: start: 20090713, end: 20100125
  4. CARBOPLATIN [Concomitant]
     Indication: BLADDER CANCER
     Dosage: 280 MG, OTHER
     Route: 042
     Dates: start: 20091001, end: 20091112
  5. TENORMIN [Concomitant]
     Dosage: UNK, UNKNOWN
     Route: 065
  6. GEMZAR [Suspect]
     Indication: BLADDER CANCER
     Dosage: 50 MG, WEEKLY (1/W)
     Route: 065
     Dates: start: 20090701
  7. ZESTORETIC [Concomitant]
     Dosage: UNK, UNKNOWN
     Route: 065
  8. GEMZAR [Suspect]
     Dosage: 1600 MG, OTHER
     Route: 042
     Dates: start: 20090713, end: 20091112

REACTIONS (2)
  - BONE MARROW FAILURE [None]
  - DYSPLASIA [None]
